FAERS Safety Report 21532387 (Version 1)
Quarter: 2022Q4

REPORT INFORMATION
  Report Type: Spontaneous
  Country: US (occurrence: US)
  Receive Date: 20221101
  Receipt Date: 20221101
  Transmission Date: 20230112
  Serious: No
  Sender: FDA-Public Use
  Company Number: US-BIOGEN-2022BI01166014

PATIENT
  Age: 45 Year
  Sex: Female

DRUGS (1)
  1. TYSABRI [Suspect]
     Active Substance: NATALIZUMAB
     Indication: Multiple sclerosis
     Route: 050
     Dates: start: 20221025

REACTIONS (3)
  - Gingival bleeding [Recovered/Resolved]
  - Fatigue [Recovered/Resolved with Sequelae]
  - Arthralgia [Recovered/Resolved]

NARRATIVE: CASE EVENT DATE: 20221001
